FAERS Safety Report 8072169-1 (Version None)
Quarter: 2012Q1

REPORT INFORMATION
  Report Type: 
  Country: None (occurrence: None)
  Receive Date: 20120126
  Receipt Date: 20120123
  Transmission Date: 20120608
  Serious: No
  Sender: FDA-Public Use
  Company Number: US-PFIZER INC-2012018642

PATIENT
  Sex: Female
  Weight: 77.1 kg

DRUGS (5)
  1. LAMICTAL [Concomitant]
     Dosage: UNK
  2. EFFEXOR XR [Concomitant]
     Dosage: UNK
  3. PROTONIX [Suspect]
     Indication: ULCER
     Dosage: 40 MG, 1X/DAY
     Route: 048
     Dates: start: 20111219, end: 20111221
  4. PROTONIX [Suspect]
     Indication: GASTROOESOPHAGEAL REFLUX DISEASE
  5. ADDERALL 5 [Concomitant]
     Dosage: UNK

REACTIONS (4)
  - BONE PAIN [None]
  - WITHDRAWAL SYNDROME [None]
  - PAIN IN EXTREMITY [None]
  - ARTHRALGIA [None]
